FAERS Safety Report 23355140 (Version 1)
Quarter: 2024Q1

REPORT INFORMATION
  Report Type: Spontaneous
  Country: FR (occurrence: FR)
  Receive Date: 20240102
  Receipt Date: 20240102
  Transmission Date: 20240410
  Serious: Yes (Other)
  Sender: FDA-Public Use
  Company Number: None

PATIENT

DRUGS (1)
  1. DICLOFENAC SODIUM [Suspect]
     Active Substance: DICLOFENAC\DICLOFENAC SODIUM
     Indication: Ankylosing spondylitis
     Dosage: UNK
     Route: 048
     Dates: start: 20230707

REACTIONS (2)
  - Panniculitis [Not Recovered/Not Resolved]
  - Erythema induratum [Not Recovered/Not Resolved]

NARRATIVE: CASE EVENT DATE: 20230801
